FAERS Safety Report 20020332 (Version 2)
Quarter: 2022Q1

REPORT INFORMATION
  Report Type: Report from Study
  Country: US (occurrence: US)
  Receive Date: 20211101
  Receipt Date: 20220311
  Transmission Date: 20220423
  Serious: Yes (Hospitalization)
  Sender: FDA-Public Use
  Company Number: US-KARYOPHARM-2021KPT001357

PATIENT
  Age: 68 Year
  Sex: Female
  Weight: 57.2 kg

DRUGS (23)
  1. SELINEXOR [Suspect]
     Active Substance: SELINEXOR
     Indication: Plasma cell myeloma
     Dosage: 30 MG/M2, 2X/WEEK
     Route: 048
     Dates: start: 20150526, end: 20150706
  2. SELINEXOR [Suspect]
     Active Substance: SELINEXOR
     Dosage: 30 MG/M2, 2X/WEEK
     Route: 048
     Dates: start: 20150722
  3. CARFILZOMIB [Suspect]
     Active Substance: CARFILZOMIB
     Indication: Plasma cell myeloma
     Dosage: 20 MG/M2, DAYS 1-2, 8-9, AND 15-16 OF A 28-DAY SCHEDULE
     Route: 042
     Dates: start: 20150526, end: 20150610
  4. CARFILZOMIB [Suspect]
     Active Substance: CARFILZOMIB
     Dosage: 37 MG/M2, DAYS 1-2, 8-9, AND 15-16 OF A 28-DAY SCHEDULE
     Route: 042
     Dates: start: 20150622, end: 20150708
  5. CARFILZOMIB [Suspect]
     Active Substance: CARFILZOMIB
     Dosage: 37 MG/M2, DAYS 1-2, 8-9, AND 15-16 OF A 28-DAY SCHEDULE
     Route: 042
     Dates: start: 20150722
  6. DEXAMETHASONE [Suspect]
     Active Substance: DEXAMETHASONE
     Indication: Plasma cell myeloma
     Dosage: 20 MG, DAYS 1-2, 8-9, 15-16, AND 22-23 ON A 28 DAY CYCLE
     Dates: start: 20150526, end: 20150706
  7. DEXAMETHASONE [Suspect]
     Active Substance: DEXAMETHASONE
     Dosage: 20 MG, DAYS 1-2, 8-9, 15-16, AND 22-23 ON A 28 DAY CYCLE
     Dates: start: 20150722
  8. ACYCLOVIR [Concomitant]
     Active Substance: ACYCLOVIR
     Dosage: 400 MG, BID
     Route: 048
  9. ASPIRIN [Concomitant]
     Active Substance: ASPIRIN
     Dosage: 81 MG, QD
     Route: 048
  10. CALCIUM CARBONATE [Concomitant]
     Active Substance: CALCIUM CARBONATE
     Dosage: 600 MG, QD
     Route: 048
  11. CHOLECALCIFEROL [Concomitant]
     Active Substance: CHOLECALCIFEROL
     Dosage: 400 MG, QD
     Route: 048
  12. OMEPRAZOLE [Concomitant]
     Active Substance: OMEPRAZOLE
     Dosage: 20 MG, QD
     Route: 048
  13. POTASSIUM CHLORIDE [Concomitant]
     Active Substance: POTASSIUM CHLORIDE
     Dosage: 10 MEQ, BID
     Route: 048
  14. ALPRAZOLAM [Concomitant]
     Active Substance: ALPRAZOLAM
     Dosage: 0.25 MG, 1-2 TABLETS PRN
     Route: 048
  15. LORAZEPAM [Concomitant]
     Active Substance: LORAZEPAM
     Dosage: 0.5 MG, BID PRN
     Route: 048
  16. PROCHLORPERAZINE [Concomitant]
     Active Substance: PROCHLORPERAZINE
     Dosage: 10 MG, Q4-6H PRN
     Route: 048
  17. ZOLPIDEM [Concomitant]
     Active Substance: ZOLPIDEM TARTRATE
     Dosage: 10 MG, AT BEDTIME PRN
     Route: 048
  18. LIDOCAINE [Concomitant]
     Active Substance: LIDOCAINE
     Dosage: 1 5% TOPICAL PATCH, APPLIED EVERY 24 HOURS AND LEFT ON SKIN FOR UP TO 12 HOURS WITHIN A 24-HOUR PERI
     Route: 061
  19. CLONAZEPAM [Concomitant]
     Active Substance: CLONAZEPAM
     Dosage: 0.25 MG, BID PRN
     Route: 048
     Dates: start: 20150702
  20. OLANZAPINE [Concomitant]
     Active Substance: OLANZAPINE
     Dosage: 2.25 MG, BID
     Route: 048
     Dates: start: 201507
  21. MEGESTROL [Concomitant]
     Active Substance: MEGESTROL
     Dosage: 40 UNK, QD
     Route: 048
     Dates: end: 20150629
  22. MIRTAZAPINE [Concomitant]
     Active Substance: MIRTAZAPINE
     Dosage: 15 MG, AT BEDTIME
     Dates: end: 20150629
  23. MUCINEX [Concomitant]
     Active Substance: GUAIFENESIN
     Dosage: UNK
     Dates: start: 20150702

REACTIONS (1)
  - Pneumonia [Recovered/Resolved]

NARRATIVE: CASE EVENT DATE: 20150710
